FAERS Safety Report 23822580 (Version 4)
Quarter: 2024Q3

REPORT INFORMATION
  Report Type: Spontaneous
  Country: US (occurrence: US)
  Receive Date: 20240506
  Receipt Date: 20240905
  Transmission Date: 20241016
  Serious: Yes (Hospitalization, Other)
  Sender: BRISTOL MYERS SQUIBB
  Company Number: US-BRISTOL-MYERS SQUIBB COMPANY-2024-068694

PATIENT
  Age: 82 Year
  Sex: Female

DRUGS (2)
  1. REVLIMID [Suspect]
     Active Substance: LENALIDOMIDE
     Indication: Plasma cell myeloma
     Dosage: QD FOR 7 DAYS ON THEN 7 DAYS OF
     Route: 048
  2. REVLIMID [Suspect]
     Active Substance: LENALIDOMIDE
     Dosage: QD FOR 7 DAYS ON THEN 7 DAYS OF
     Route: 048

REACTIONS (10)
  - Cholelithiasis [Unknown]
  - Pancreatolithiasis [Unknown]
  - Off label use [Unknown]
  - Product dose omission issue [Unknown]
  - Joint swelling [Unknown]
  - Fatigue [Unknown]
  - Decreased appetite [Unknown]
  - Diarrhoea [Unknown]
  - Product supply issue [Unknown]
  - Therapy interrupted [Unknown]
